FAERS Safety Report 10004458 (Version 3)
Quarter: 2014Q2

REPORT INFORMATION
  Report Type: Spontaneous
  Country: GB (occurrence: GB)
  Receive Date: 20140312
  Receipt Date: 20140403
  Transmission Date: 20141212
  Serious: No
  Sender: FDA-Public Use
  Company Number: GB-PFIZER INC-2014070164

PATIENT
  Age: 50 Year
  Sex: Male

DRUGS (8)
  1. ATENOLOL [Suspect]
     Indication: ESSENTIAL HYPERTENSION
     Dosage: 100 MG, DAILY
     Route: 048
     Dates: start: 1986, end: 201212
  2. ATENOLOL [Suspect]
     Dosage: 50 MG, DAILY
     Route: 048
     Dates: start: 201308
  3. ATENOLOL [Suspect]
     Dosage: 75 MG, DAILY (50 MG AM + 25 MG PM)
     Route: 048
  4. CHLORTALIDONE [Concomitant]
     Dosage: 25 MG, UNK
     Dates: end: 201212
  5. DIAZEPAM [Concomitant]
  6. NIFEDIPINE [Concomitant]
  7. OLMETEC [Concomitant]
  8. RAMIPRIL [Concomitant]
     Dosage: UNK

REACTIONS (11)
  - Anxiety [Recovered/Resolved]
  - Malaise [Recovered/Resolved]
  - Tachycardia [Recovered/Resolved]
  - Muscle contractions involuntary [Recovered/Resolved]
  - Blood pressure increased [Recovered/Resolved]
  - Norepinephrine increased [Recovered/Resolved]
  - Nervousness [Recovered/Resolved]
  - Acute stress disorder [Recovered/Resolved]
  - Drug withdrawal syndrome [Recovered/Resolved]
  - Feeling abnormal [Recovered/Resolved]
  - Therapy cessation [Unknown]
